FAERS Safety Report 4567652-7 (Version None)
Quarter: 2005Q1

REPORT INFORMATION
  Report Type: 
  Country: None (occurrence: None)
  Receive Date: 20050110
  Receipt Date: 20050110
  Transmission Date: 20050727
  Serious: No
  Sender: FDA-Public Use
  Company Number: None

PATIENT

DRUGS (2)
  1. ATIVAN [Suspect]
     Indication: BIPOLAR I DISORDER
     Dosage: 1 QID
  2. ATIVAN [Suspect]
     Indication: DEPRESSION
     Dosage: 1 QID

REACTIONS (2)
  - DRUG EFFECT DECREASED [None]
  - PHARMACEUTICAL PRODUCT COMPLAINT [None]
